FAERS Safety Report 8312060-6 (Version None)
Quarter: 2012Q1

REPORT INFORMATION
  Report Type: 
  Country: None (occurrence: None)
  Receive Date: 20120315
  Receipt Date: 20110604
  Transmission Date: 20120608
  Serious: Yes (Other)
  Sender: FDA-Public Use
  Company Number: PHHY2011US31071

PATIENT
  Age: 54 Year
  Sex: Female

DRUGS (13)
  1. VITAMIN D [Concomitant]
  2. LUNESTA [Concomitant]
  3. ASPIRIN [Concomitant]
  4. GILENYA [Suspect]
     Indication: MULTIPLE SCLEROSIS
     Dosage: 0.5 MG, QD, ORAL 0.5 MG, QD, ORAL
     Route: 048
     Dates: start: 20110104, end: 20110314
  5. GILENYA [Suspect]
     Indication: MULTIPLE SCLEROSIS
     Dosage: 0.5 MG, QD, ORAL 0.5 MG, QD, ORAL
     Route: 048
     Dates: start: 20110501
  6. CALCITRATE (CALCIUM) [Concomitant]
  7. BIOTIN (BIOTIN) [Concomitant]
  8. MAGNESIUM (MAGNESIUM) [Concomitant]
  9. HYDROCODONE W/ACETAMINOPHEN (HYDROCODONE BITARTRATE, PARACETAMOL) TABL [Concomitant]
  10. BACLOFEN [Concomitant]
  11. VITAMIN B COMPLEX CAP [Concomitant]
  12. AMPYRA [Concomitant]
  13. LYRICA [Concomitant]

REACTIONS (3)
  - HERPES ZOSTER [None]
  - BACK PAIN [None]
  - RASH PUSTULAR [None]
